FAERS Safety Report 6261027-0 (Version None)
Quarter: 2009Q3

REPORT INFORMATION
  Report Type: 
  Country: None (occurrence: None)
  Receive Date: 20090709
  Receipt Date: 20090701
  Transmission Date: 20100115
  Serious: Yes (Hospitalization)
  Sender: FDA-Public Use
  Company Number: US-BIOGENIDEC-2009BI008988

PATIENT
  Age: 52 Year
  Sex: Female
  Weight: 44 kg

DRUGS (1)
  1. TYSABRI [Suspect]
     Indication: MULTIPLE SCLEROSIS
     Route: 042
     Dates: start: 20090105

REACTIONS (12)
  - ABDOMINAL HERNIA [None]
  - BLOOD COUNT ABNORMAL [None]
  - CONDITION AGGRAVATED [None]
  - FALL [None]
  - FOREIGN BODY ASPIRATION [None]
  - GENERAL SYMPTOM [None]
  - HERNIAL EVENTRATION [None]
  - MULTIPLE SCLEROSIS [None]
  - MUSCLE SPASMS [None]
  - PAIN IN EXTREMITY [None]
  - PNEUMONIA STAPHYLOCOCCAL [None]
  - STAPHYLOCOCCAL INFECTION [None]
